FAERS Safety Report 5503093-3 (Version None)
Quarter: 2007Q4

REPORT INFORMATION
  Report Type: 
  Country: None (occurrence: None)
  Receive Date: 20071031
  Receipt Date: 20071019
  Transmission Date: 20080405
  Serious: Yes (Hospitalization)
  Sender: FDA-Public Use
  Company Number: US-SANOFI-SYNTHELABO-A03200706098

PATIENT
  Age: 52 Year
  Sex: Female

DRUGS (9)
  1. HYDROCHLOROTHIAZIDE [Concomitant]
     Indication: DRUG USE FOR UNKNOWN INDICATION
     Dosage: UNK
     Route: 065
  2. TOPROL-XL [Concomitant]
     Indication: DRUG USE FOR UNKNOWN INDICATION
     Dosage: UNK
     Route: 065
  3. COLACE [Concomitant]
     Indication: DRUG USE FOR UNKNOWN INDICATION
     Dosage: UNK
     Route: 065
  4. PRILOSEC [Concomitant]
     Indication: DRUG USE FOR UNKNOWN INDICATION
     Dosage: UNK
     Route: 065
  5. NEURONTIN [Concomitant]
     Indication: DRUG USE FOR UNKNOWN INDICATION
     Dosage: UNK
     Route: 065
  6. CELEBREX [Concomitant]
     Indication: DRUG USE FOR UNKNOWN INDICATION
     Dosage: UNK
     Route: 065
  7. DURAGESIC-100 [Concomitant]
     Indication: DRUG USE FOR UNKNOWN INDICATION
     Dosage: UNK
     Route: 065
  8. AMBIEN [Suspect]
     Indication: INSOMNIA
     Route: 048
     Dates: start: 20030101, end: 20070601
  9. AMBIEN [Suspect]
     Route: 048
     Dates: start: 20070101

REACTIONS (16)
  - ANAEMIA [None]
  - ANOREXIA [None]
  - ASTHENIA [None]
  - DEHYDRATION [None]
  - DIARRHOEA [None]
  - DRUG WITHDRAWAL SYNDROME [None]
  - DRY MOUTH [None]
  - DYSGEUSIA [None]
  - DYSPNOEA [None]
  - FEELING HOT [None]
  - HYPERHIDROSIS [None]
  - MALNUTRITION [None]
  - NAUSEA [None]
  - PALPITATIONS [None]
  - VOMITING [None]
  - WEIGHT DECREASED [None]
